FAERS Safety Report 7799244-0 (Version None)
Quarter: 2011Q4

REPORT INFORMATION
  Report Type: 
  Country: None (occurrence: None)
  Receive Date: 20111006
  Receipt Date: 20110920
  Transmission Date: 20120403
  Serious: Yes (Other)
  Sender: FDA-Public Use
  Company Number: DE-JNJFOC-20110908248

PATIENT
  Sex: Female

DRUGS (1)
  1. LISTERINE TOTAL CARE SENSITIVE [Suspect]
     Indication: PRODUCT USED FOR UNKNOWN INDICATION
     Dosage: ONE TOTAL
     Route: 048
     Dates: start: 20110918, end: 20110918

REACTIONS (2)
  - OPEN WOUND [None]
  - PAIN [None]
